FAERS Safety Report 4548761-5 (Version None)
Quarter: 2005Q1

REPORT INFORMATION
  Report Type: 
  Country: None (occurrence: None)
  Receive Date: 20050107
  Receipt Date: 20050107
  Transmission Date: 20050727
  Serious: Yes (Hospitalization)
  Sender: FDA-Public Use
  Company Number: None

PATIENT
  Age: 94 Year
  Sex: Male
  Weight: 72 kg

DRUGS (3)
  1. LISINOPRIL [Suspect]
     Indication: HYPERTENSION
     Dosage: 70MG  QD ORAL
     Route: 048
     Dates: start: 20040105, end: 20040106
  2. ENOXAPARIN SODIUM [Concomitant]
  3. METOPROLOL [Concomitant]

REACTIONS (2)
  - HYPOPERFUSION [None]
  - SKIN DISCOLOURATION [None]
